FAERS Safety Report 16044380 (Version 2)
Quarter: 2019Q2

REPORT INFORMATION
  Report Type: Spontaneous
  Country: FR (occurrence: FR)
  Receive Date: 20190306
  Receipt Date: 20190402
  Transmission Date: 20190711
  Serious: Yes (Life-Threatening, Other)
  Sender: FDA-Public Use
  Company Number: FR-MYLANLABS-2019M1021111

PATIENT
  Age: 31 Year
  Sex: Female
  Weight: 75 kg

DRUGS (1)
  1. BUPIVACAINE MYLAN [Suspect]
     Active Substance: BUPIVACAINE
     Indication: SPINAL ANAESTHESIA
     Dosage: 12 GRAM, QD (2.2 ML)
     Dates: start: 20190301, end: 20190301

REACTIONS (7)
  - Tremor [Not Recovered/Not Resolved]
  - Bradycardia [Not Recovered/Not Resolved]
  - Malaise [Recovered/Resolved]
  - Hypotension [Not Recovered/Not Resolved]
  - Maternal exposure during delivery [Recovered/Resolved]
  - Loss of consciousness [Not Recovered/Not Resolved]
  - Underdose [Recovered/Resolved]

NARRATIVE: CASE EVENT DATE: 20190301
